FAERS Safety Report 7878290-2 (Version None)
Quarter: 2011Q4

REPORT INFORMATION
  Report Type: 
  Country: None (occurrence: None)
  Receive Date: 20111101
  Receipt Date: 20111024
  Transmission Date: 20120403
  Serious: Yes (Other)
  Sender: FDA-Public Use
  Company Number: DE-JNJFOC-20110809410

PATIENT
  Sex: Male
  Weight: 120 kg

DRUGS (2)
  1. RISPERDAL [Suspect]
     Indication: PSYCHOTIC DISORDER
     Route: 048
     Dates: start: 20030101, end: 20060101
  2. RISPERDAL [Suspect]
     Indication: TOURETTE'S DISORDER
     Route: 048
     Dates: start: 20030101, end: 20060101

REACTIONS (1)
  - HYPOGONADISM [None]
